FAERS Safety Report 6705340-9 (Version None)
Quarter: 2010Q2

REPORT INFORMATION
  Report Type: 
  Country: None (occurrence: None)
  Receive Date: 20100501
  Receipt Date: 20100420
  Transmission Date: 20101027
  Serious: Yes (Hospitalization, Other)
  Sender: FDA-Public Use
  Company Number: US-ELI_LILLY_AND_COMPANY-US201004006887

PATIENT
  Sex: Female

DRUGS (8)
  1. FORTEO [Suspect]
     Indication: OSTEOPOROSIS
     Dosage: 20 UG, DAILY (1/D)
     Route: 058
     Dates: start: 20090401, end: 20091001
  2. FORTEO [Suspect]
     Dosage: 20 UG, DAILY (1/D)
     Route: 058
     Dates: start: 20100101
  3. OMEPRAZOLE [Concomitant]
     Dosage: 20 MG, DAILY (1/D)
  4. ZOLOFT [Concomitant]
     Dosage: 50 MG, DAILY (1/D)
  5. SYNTHROID [Concomitant]
  6. CALCIUM WITH VITAMIN D [Concomitant]
     Dosage: 1200 MG, 2/D
  7. FENTANYL [Concomitant]
     Dosage: 25 MEQ, UNK
  8. VICODIN [Concomitant]

REACTIONS (7)
  - ASTHENIA [None]
  - DIZZINESS [None]
  - FALL [None]
  - GAIT DISTURBANCE [None]
  - JOINT INJURY [None]
  - PELVIC FRACTURE [None]
  - THROMBOSIS [None]
